FAERS Safety Report 11273291 (Version 1)
Quarter: 2015Q2

REPORT INFORMATION
  Report Type: Spontaneous
  Country: US (occurrence: None)
  Receive Date: 20150625
  Receipt Date: 20150625
  Transmission Date: 20150821
  Serious: No
  Sender: FDA-Public Use
  Company Number: A-NJ2015-114142

PATIENT
  Age: 71 Year
  Sex: Male

DRUGS (4)
  1. WARFARIN [Concomitant]
     Active Substance: WARFARIN
  2. ASPIRIN (ACETYLSALICYLIC ACID) [Concomitant]
     Active Substance: ASPIRIN
  3. RIOCIGUAT [Concomitant]
     Active Substance: RIOCIGUAT
  4. OPSUMIT [Suspect]
     Active Substance: MACITENTAN
     Indication: PULMONARY HYPERTENSION
     Route: 048
     Dates: start: 20150211

REACTIONS (6)
  - Fluid retention [None]
  - Oedema [None]
  - Peripheral swelling [None]
  - Dry skin [None]
  - Epistaxis [None]
  - Weight increased [None]

NARRATIVE: CASE EVENT DATE: 20150211
